FAERS Safety Report 6769735-X (Version None)
Quarter: 2010Q2

REPORT INFORMATION
  Report Type: 
  Country: None (occurrence: None)
  Receive Date: 20100615
  Receipt Date: 20100604
  Transmission Date: 20101027
  Serious: Yes (Death, Hospitalization)
  Sender: FDA-Public Use
  Company Number: US-ROCHE-694113

PATIENT
  Sex: Female
  Weight: 53.5 kg

DRUGS (2)
  1. CAPECITABINE [Suspect]
     Dosage: TEMPORARILY DISCONTINUED; INDICATION REPORTED AS CANCER OF PO SPINE
     Route: 048
     Dates: start: 20091103, end: 20100308
  2. CAPECITABINE [Suspect]
     Route: 048

REACTIONS (2)
  - DEATH [None]
  - RESPIRATORY DISORDER [None]
